FAERS Safety Report 10028798 (Version 1)
Quarter: 2014Q1

REPORT INFORMATION
  Report Type: Spontaneous
  Country: US (occurrence: US)
  Receive Date: 20140321
  Receipt Date: 20140321
  Transmission Date: 20141002
  Serious: No
  Sender: FDA-Public Use
  Company Number: US-009507513-1403USA009645

PATIENT
  Age: 38 Year
  Sex: Female

DRUGS (4)
  1. CORICIDIN HBP COLD AND FLU [Suspect]
     Indication: PRODUCT USED FOR UNKNOWN INDICATION
     Dosage: UNK, UNKNOWN
     Route: 048
  2. CORICIDIN HBP COLD AND FLU [Suspect]
     Indication: NASAL CONGESTION
  3. CORICIDIN HBP COLD AND FLU [Suspect]
     Indication: OROPHARYNGEAL PAIN
  4. CORICIDIN HBP COLD AND FLU [Suspect]
     Indication: HEAD DISCOMFORT

REACTIONS (3)
  - Dizziness [Unknown]
  - Off label use [Unknown]
  - Therapeutic response unexpected [Unknown]
